FAERS Safety Report 7217211-2 (Version None)
Quarter: 2011Q1

REPORT INFORMATION
  Report Type: 
  Country: None (occurrence: None)
  Receive Date: 20110110
  Receipt Date: 20110105
  Transmission Date: 20110831
  Serious: Yes (Death, Other)
  Sender: FDA-Public Use
  Company Number: US-JNJFOC-20110101286

PATIENT
  Sex: Male
  Weight: 63.5 kg

DRUGS (2)
  1. IMODIUM MULTI-SYMPTOM RELIEF [Suspect]
     Indication: EUPHORIC MOOD
     Dosage: TAKEN HIGH LEVEL OF IMODIUM
     Route: 048
  2. IMODIUM MULTI-SYMPTOM RELIEF [Suspect]
     Indication: DIARRHOEA
     Dosage: TAKEN HIGH LEVEL OF IMODIUM
     Route: 048

REACTIONS (3)
  - OVERDOSE [None]
  - DRUG ABUSE [None]
  - TOXICITY TO VARIOUS AGENTS [None]
